FAERS Safety Report 11320900 (Version 3)
Quarter: 2015Q4

REPORT INFORMATION
  Report Type: Report from Study
  Country: US (occurrence: US)
  Receive Date: 20150729
  Receipt Date: 20151007
  Transmission Date: 20160304
  Serious: Yes (Other)
  Sender: FDA-Public Use
  Company Number: US-BAXALTA-2015BLT000636

PATIENT
  Age: 60 Year
  Sex: Female

DRUGS (3)
  1. HYQVIA [Suspect]
     Active Substance: HUMAN IMMUNOGLOBULIN G\HYALURONIDASE RECOMBINANT HUMAN
     Dosage: 30 G, EVERY 4 WK, FIRST FULL DOSE
     Route: 058
     Dates: start: 20150714
  2. HYQVIA [Suspect]
     Active Substance: HUMAN IMMUNOGLOBULIN G\HYALURONIDASE RECOMBINANT HUMAN
     Dosage: UNK, 1X A MONTH
     Route: 058
  3. HYQVIA [Suspect]
     Active Substance: HUMAN IMMUNOGLOBULIN G\HYALURONIDASE RECOMBINANT HUMAN
     Indication: PRIMARY IMMUNODEFICIENCY SYNDROME
     Dosage: UNK, UNK
     Route: 058

REACTIONS (10)
  - Arthritis [Recovering/Resolving]
  - Gastrooesophageal reflux disease [Recovered/Resolved]
  - Fatigue [Recovered/Resolved]
  - Hyperhidrosis [Recovering/Resolving]
  - Feeling abnormal [Recovered/Resolved]
  - Sinusitis [Recovering/Resolving]
  - Infusion site extravasation [Recovered/Resolved]
  - Pain [Recovering/Resolving]
  - Infusion site erythema [Recovering/Resolving]
  - Eructation [Recovered/Resolved]

NARRATIVE: CASE EVENT DATE: 201506
